FAERS Safety Report 6148948-4 (Version None)
Quarter: 2009Q2

REPORT INFORMATION
  Report Type: 
  Country: None (occurrence: None)
  Receive Date: 20090406
  Receipt Date: 20090326
  Transmission Date: 20091009
  Serious: Yes (Other)
  Sender: FDA-Public Use
  Company Number: SPV1-2009-00505

PATIENT
  Age: 23 Year
  Sex: Male

DRUGS (2)
  1. MESALAMINE [Suspect]
     Indication: COLITIS ULCERATIVE
     Dosage: 2.4 G, 1X/DAY:QD, ORAL
     Route: 048
     Dates: start: 20060301, end: 20060401
  2. METHYLPREDNISOLONE 16MG TAB [Concomitant]

REACTIONS (5)
  - ARTHRALGIA [None]
  - COLITIS [None]
  - INFLUENZA [None]
  - PLEURAL EFFUSION [None]
  - PLEURISY [None]
